FAERS Safety Report 9631698 (Version 2)
Quarter: 2014Q2

REPORT INFORMATION
  Report Type: Spontaneous
  Country: FR (occurrence: FR)
  Receive Date: 20131018
  Receipt Date: 20140401
  Transmission Date: 20141212
  Serious: Yes (Hospitalization)
  Sender: FDA-Public Use
  Company Number: FR-GE HEALTHCARE MEDICAL DIAGNOSTICS-OMPQ-PR-1310S-1227

PATIENT
  Age: 71 Year
  Sex: Male

DRUGS (11)
  1. OMNIPAQUE [Suspect]
     Indication: PRODUCT USED FOR UNKNOWN INDICATION
     Route: 042
     Dates: start: 20130924, end: 20130924
  2. OMNIPAQUE [Suspect]
     Indication: DIAGNOSTIC PROCEDURE
  3. VELMETIA [Suspect]
     Route: 048
     Dates: end: 20130926
  4. TEMESTA [Concomitant]
     Route: 048
  5. DAONIL [Concomitant]
     Route: 048
  6. HEMIDAONIL [Concomitant]
     Route: 048
     Dates: end: 20130926
  7. CRESTOR [Concomitant]
     Route: 048
     Dates: end: 20130926
  8. DEROXAT [Concomitant]
     Route: 048
     Dates: end: 20130926
  9. AVLOCADRYL [Concomitant]
     Route: 048
     Dates: end: 20130926
  10. LASILIX [Concomitant]
  11. ALDACTONE [Concomitant]

REACTIONS (3)
  - Hyperkalaemia [Recovered/Resolved]
  - Blood lactic acid increased [Recovered/Resolved]
  - Renal failure acute [Recovered/Resolved]
